FAERS Safety Report 23679369 (Version 1)
Quarter: 2024Q1

REPORT INFORMATION
  Report Type: Spontaneous
  Country: US (occurrence: US)
  Receive Date: 20240327
  Receipt Date: 20240327
  Transmission Date: 20240410
  Serious: Yes (Life-Threatening, Hospitalization)
  Sender: FDA-Public Use
  Company Number: US-MYLANLABS-2024M1027186

PATIENT
  Age: 46 Year
  Sex: Female

DRUGS (2)
  1. DUONEB [Suspect]
     Active Substance: ALBUTEROL SULFATE\IPRATROPIUM BROMIDE
     Indication: Dyspnoea
     Dosage: UNK
     Route: 055
  2. EPINEPHRINE [Suspect]
     Active Substance: EPINEPHRINE
     Indication: Dyspnoea
     Dosage: UNK
     Route: 055

REACTIONS (4)
  - Stress cardiomyopathy [Unknown]
  - Acute respiratory failure [Unknown]
  - Acidosis [Unknown]
  - Hypercapnia [Unknown]
